APPROVED DRUG PRODUCT: RUFINAMIDE
Active Ingredient: RUFINAMIDE
Strength: 200MG
Dosage Form/Route: TABLET;ORAL
Application: A204988 | Product #001 | TE Code: AB
Applicant: HIKMA PHARMACEUTICALS USA INC
Approved: May 16, 2016 | RLD: No | RS: No | Type: RX